FAERS Safety Report 15495441 (Version 1)
Quarter: 2018Q4

REPORT INFORMATION
  Report Type: Spontaneous
  Country: US (occurrence: US)
  Receive Date: 20181013
  Receipt Date: 20181013
  Transmission Date: 20190205
  Serious: No
  Sender: FDA-Public Use
  Company Number: US-BIOGEN-2018BI00643641

PATIENT
  Sex: Female

DRUGS (1)
  1. AVONEX [Suspect]
     Active Substance: INTERFERON BETA-1A
     Indication: MULTIPLE SCLEROSIS
     Route: 065
     Dates: start: 20070810

REACTIONS (3)
  - Nuclear magnetic resonance imaging abnormal [Not Recovered/Not Resolved]
  - Musculoskeletal disorder [Recovered/Resolved with Sequelae]
  - Multiple sclerosis [Unknown]
